FAERS Safety Report 7302165-0 (Version None)
Quarter: 2011Q1

REPORT INFORMATION
  Report Type: 
  Country: None (occurrence: None)
  Receive Date: 20110218
  Receipt Date: 20110207
  Transmission Date: 20110831
  Serious: Yes (Other)
  Sender: FDA-Public Use
  Company Number: PHHY2011TW10713

PATIENT
  Age: 6 Year
  Sex: Female

DRUGS (3)
  1. METHOTREXATE [Suspect]
     Indication: SCLERODERMA
     Dosage: 12.5 MG, QW
  2. PENICILLAMINE [Suspect]
     Indication: SCLERODERMA
     Dosage: 300 MG, BID
     Route: 048
  3. PREDNISOLONE [Suspect]
     Indication: SCLERODERMA

REACTIONS (5)
  - NEPHROTIC SYNDROME [None]
  - PROTEINURIA [None]
  - OEDEMA [None]
  - HYPOALBUMINAEMIA [None]
  - HYPERLIPIDAEMIA [None]
